FAERS Safety Report 25600600 (Version 1)
Quarter: 2025Q3

REPORT INFORMATION
  Report Type: Spontaneous
  Country: US (occurrence: None)
  Receive Date: 20250723
  Receipt Date: 20250723
  Transmission Date: 20251021
  Serious: No
  Sender: FDA-CTU
  Company Number: None

PATIENT
  Age: 39 Year
  Sex: Female

DRUGS (1)
  1. RINVOQ [Suspect]
     Active Substance: UPADACITINIB
     Indication: Rheumatoid arthritis
     Dosage: 15 M DAILY ORAL
     Route: 048
     Dates: start: 20250220

REACTIONS (4)
  - Cluster headache [None]
  - Urinary tract infection [None]
  - Rash [None]
  - Skin irritation [None]

NARRATIVE: CASE EVENT DATE: 20250201
